FAERS Safety Report 9205409 (Version 2)
Quarter: 2013Q2

REPORT INFORMATION
  Report Type: Other
  Country: DK (occurrence: DK)
  Receive Date: 20130402
  Receipt Date: 20130402
  Transmission Date: 20140414
  Serious: Yes (Death, Life-Threatening)
  Sender: FDA-Public Use
  Company Number: DK-ABBOTT-99P-044-0082951-00

PATIENT
  Age: 43 Year
  Sex: Male

DRUGS (16)
  1. DEPRAKINE /00228501/ [Suspect]
     Indication: EPILEPSY
     Route: 048
  2. DEPRAKINE /00228501/ [Suspect]
  3. DEPRAKINE /00228501/ [Suspect]
  4. DEPRAKINE /00228501/ [Suspect]
  5. DEPRAKINE /00228501/ [Suspect]
  6. DEPRAKINE /00228501/ [Suspect]
  7. CLOZAPINE [Suspect]
     Indication: BIPOLAR DISORDER
     Route: 048
     Dates: start: 19981118, end: 19981118
  8. ANAFRANIL [Suspect]
     Indication: THYMOMA MALIGNANT RECURRENT
     Route: 048
     Dates: start: 19981118, end: 19981118
  9. TRILEPTAL [Suspect]
     Indication: THYMOMA MALIGNANT RECURRENT
     Route: 048
  10. LAMICTAL [Suspect]
     Indication: EPILEPSY
     Route: 048
  11. FELODIPINE [Concomitant]
     Indication: PRODUCT USED FOR UNKNOWN INDICATION
  12. STILNOCT [Concomitant]
     Indication: PRODUCT USED FOR UNKNOWN INDICATION
  13. OXAZEPAM [Concomitant]
     Indication: PRODUCT USED FOR UNKNOWN INDICATION
  14. DOGMATIL [Concomitant]
     Indication: PRODUCT USED FOR UNKNOWN INDICATION
  15. CORODIL [Concomitant]
     Indication: PRODUCT USED FOR UNKNOWN INDICATION
  16. SERENASE [Concomitant]
     Indication: PRODUCT USED FOR UNKNOWN INDICATION

REACTIONS (9)
  - Sudden death [Fatal]
  - Agitation [Unknown]
  - Overdose [Unknown]
  - Aggression [Unknown]
  - Medication error [Unknown]
  - Loss of consciousness [Unknown]
  - Cardiac arrest [Unknown]
  - Accidental overdose [None]
  - Toxicity to various agents [None]
